FAERS Safety Report 5271446-7 (Version None)
Quarter: 2007Q1

REPORT INFORMATION
  Report Type: 
  Country: None (occurrence: None)
  Receive Date: 20070321
  Receipt Date: 20070314
  Transmission Date: 20070707
  Serious: Yes (Disabling)
  Sender: FDA-Public Use
  Company Number: US-BOEHRINGER INGELHEIM PHARMACEUTICALS, INC.-2007-BP-02773BP

PATIENT
  Age: 91 Year
  Sex: Male

DRUGS (8)
  1. FLOMAX [Suspect]
     Indication: PROSTATE CANCER
     Route: 048
     Dates: start: 20040101, end: 20050101
  2. FLOMAX [Suspect]
     Indication: PROSTATE EXAMINATION ABNORMAL
  3. THYROID MEDICINE [Concomitant]
  4. DOXAZOSIN MESYLATE [Concomitant]
  5. COZAAR [Concomitant]
  6. SPIRONOLACTONE [Concomitant]
  7. XALATAN [Concomitant]
  8. LEVOBUNOLOL [Concomitant]

REACTIONS (3)
  - BLINDNESS [None]
  - CATARACT [None]
  - VISUAL ACUITY REDUCED [None]
